FAERS Safety Report 15425319 (Version 1)
Quarter: 2018Q3

REPORT INFORMATION
  Report Type: Spontaneous
  Country: US (occurrence: US)
  Receive Date: 20180925
  Receipt Date: 20180925
  Transmission Date: 20181010
  Serious: No
  Sender: FDA-Public Use
  Company Number: US-3M-2018-US-002291

PATIENT
  Age: 83 Year
  Sex: Male
  Weight: 65.77 kg

DRUGS (2)
  1. BABY ASPIRIN [Concomitant]
     Active Substance: ASPIRIN
  2. PERIDEX [Suspect]
     Active Substance: CHLORHEXIDINE GLUCONATE
     Indication: ORAL SURGERY
     Dosage: APPROXIMATELY A CAPFUL THREE TIMES DAILY
     Route: 048
     Dates: start: 20180206

REACTIONS (2)
  - Accidental exposure to product [Unknown]
  - Headache [Unknown]

NARRATIVE: CASE EVENT DATE: 20180212
